FAERS Safety Report 16903096 (Version 6)
Quarter: 2020Q3

REPORT INFORMATION
  Report Type: Report from Study
  Country: CA (occurrence: CA)
  Receive Date: 20191010
  Receipt Date: 20200708
  Transmission Date: 20201102
  Serious: Yes (Hospitalization, Other)
  Sender: FDA-Public Use
  Company Number: CA-ROCHE-2190496

PATIENT
  Age: 58 Year
  Sex: Female

DRUGS (9)
  1. TURMERIC [CURCUMA LONGA] [Concomitant]
     Active Substance: HERBALS\TURMERIC
     Dosage: ONGOING : YES
     Route: 065
     Dates: start: 2008
  2. SERTRALIN [SERTRALINE] [Concomitant]
     Active Substance: SERTRALINE HYDROCHLORIDE
     Indication: DEPRESSION
     Dosage: ONGOING : YES
     Route: 048
     Dates: start: 2013
  3. GABAPENTIN. [Suspect]
     Active Substance: GABAPENTIN
     Indication: PRODUCT USED FOR UNKNOWN INDICATION
     Route: 065
  4. LYRICA [Concomitant]
     Active Substance: PREGABALIN
     Indication: NEURALGIA
     Dosage: AS NEEDED
     Route: 048
     Dates: start: 2016
  5. BIOTIN [Concomitant]
     Active Substance: BIOTIN
     Dosage: ONGOING : YES
     Route: 048
     Dates: start: 2008
  6. RAMIPRIL. [Concomitant]
     Active Substance: RAMIPRIL
     Indication: HYPERTENSION
     Dosage: ONGOING : YES
     Route: 048
     Dates: start: 2013
  7. ESOMEPRAZOLE. [Concomitant]
     Active Substance: ESOMEPRAZOLE MAGNESIUM
     Indication: GASTROOESOPHAGEAL REFLUX DISEASE
     Dosage: ONGOING : YES
     Route: 048
     Dates: start: 2013
  8. BENADRYL [Suspect]
     Active Substance: DIPHENHYDRAMINE HYDROCHLORIDE
     Indication: PRODUCT USED FOR UNKNOWN INDICATION
     Route: 065
  9. OCREVUS [Suspect]
     Active Substance: OCRELIZUMAB
     Indication: RELAPSING-REMITTING MULTIPLE SCLEROSIS
     Dosage: 300 MG DAY 0 AND 14, THEN 600MG EVERY 6 MONTHS ;ONGOING: YES
     Route: 042
     Dates: start: 20180914

REACTIONS (24)
  - COVID-19 [Recovering/Resolving]
  - Pyrexia [Not Recovered/Not Resolved]
  - Disturbance in attention [Unknown]
  - Dysphagia [Recovered/Resolved]
  - Illness [Recovered/Resolved]
  - Hiatus hernia [Recovered/Resolved]
  - Myocardial infarction [Recovered/Resolved]
  - Gait disturbance [Not Recovered/Not Resolved]
  - Mental impairment [Unknown]
  - Somnolence [Unknown]
  - Psychomotor hyperactivity [Unknown]
  - Flushing [Not Recovered/Not Resolved]
  - Dizziness [Not Recovered/Not Resolved]
  - Diarrhoea [Not Recovered/Not Resolved]
  - Lymphocyte count decreased [Unknown]
  - Dyspnoea [Recovered/Resolved]
  - Erythema [Recovered/Resolved]
  - Vertigo [Recovered/Resolved]
  - Nausea [Not Recovered/Not Resolved]
  - Balance disorder [Not Recovered/Not Resolved]
  - Fall [Recovering/Resolving]
  - Ankle fracture [Recovering/Resolving]
  - Confusional state [Unknown]
  - Fatigue [Not Recovered/Not Resolved]

NARRATIVE: CASE EVENT DATE: 20180928
